FAERS Safety Report 8869368 (Version 1)
Quarter: 2012Q4

REPORT INFORMATION
  Report Type: Spontaneous
  Country: TW (occurrence: None)
  Receive Date: 20121022
  Receipt Date: 20121022
  Transmission Date: 20130627
  Serious: Yes (Death, Hospitalization)
  Sender: FDA-Public Use
  Company Number: DSA_60149_2012

PATIENT
  Age: 70 Year
  Sex: Female

DRUGS (1)
  1. METRONIDAZOLE (METRONIDAZOLE) [Suspect]
     Indication: ABDOMINAL INFECTION
     Dosage: (total dose: 41.25g)

REACTIONS (5)
  - Encephalopathy [None]
  - Nystagmus [None]
  - Cerebellar syndrome [None]
  - Sepsis [None]
  - Organ failure [None]
